FAERS Safety Report 9293234 (Version 1)
Quarter: 2013Q2

REPORT INFORMATION
  Report Type: Spontaneous
  Country: NO (occurrence: NO)
  Receive Date: 20130516
  Receipt Date: 20130516
  Transmission Date: 20140414
  Serious: Yes (Life-Threatening, Hospitalization)
  Sender: FDA-Public Use
  Company Number: NO-BAXTER-2013BAX003508

PATIENT
  Age: 26 Year
  Sex: Male

DRUGS (12)
  1. KIOVIG 100 MG/ML INFUSJONSV?SKE, OPPL?SNING [Suspect]
     Indication: H1N1 INFLUENZA
     Dosage: 0.4 G/KG FOR 5 DAYS
     Route: 065
     Dates: start: 20121216, end: 20121220
  2. KIOVIG 100 MG/ML INFUSJONSV?SKE, OPPL?SNING [Suspect]
     Indication: OFF LABEL USE
  3. MERONEM [Concomitant]
     Indication: PRODUCT USED FOR UNKNOWN INDICATION
     Route: 065
  4. AFIPRAN [Concomitant]
     Indication: PRODUCT USED FOR UNKNOWN INDICATION
     Route: 065
  5. RELISTOR [Concomitant]
     Indication: PRODUCT USED FOR UNKNOWN INDICATION
     Route: 065
  6. CLONIDINE [Concomitant]
     Indication: PRODUCT USED FOR UNKNOWN INDICATION
     Route: 065
  7. PROPOFOL [Concomitant]
     Indication: PRODUCT USED FOR UNKNOWN INDICATION
     Route: 065
  8. NITROPRESS [Concomitant]
     Indication: PRODUCT USED FOR UNKNOWN INDICATION
     Route: 065
  9. AZITROMAX [Concomitant]
     Indication: PRODUCT USED FOR UNKNOWN INDICATION
     Route: 065
  10. FURIX [Concomitant]
     Indication: PRODUCT USED FOR UNKNOWN INDICATION
     Route: 065
  11. TAMIFLU [Concomitant]
     Indication: INFLUENZA
     Route: 065
  12. WARFARIN [Concomitant]
     Indication: ATRIAL FIBRILLATION

REACTIONS (1)
  - Pulmonary embolism [Unknown]
